FAERS Safety Report 8890314 (Version 1)
Quarter: 2012Q4

REPORT INFORMATION
  Report Type: 
  Country: JP (occurrence: JP)
  Receive Date: 20121107
  Receipt Date: 20121107
  Transmission Date: 20130627
  Serious: Yes (Death, Other)
  Sender: FDA-Public Use
  Company Number: JP-009507513-2010SP010238

PATIENT
  Age: 65 Year
  Sex: Male
  Weight: 80 kg

DRUGS (5)
  1. TEMOZOLOMIDE [Suspect]
     Indication: GLIOBLASTOMA MULTIFORME
     Dosage: 75 mg/m2, QD
     Route: 048
     Dates: start: 20061018, end: 20061128
  2. ALEVIATIN [Suspect]
     Indication: PROPHYLAXIS
     Dosage: Formulation POR (unspecified)
     Route: 048
     Dates: start: 20060922, end: 20070109
  3. TANATRIL [Concomitant]
     Route: 048
     Dates: end: 20061219
  4. NORVASC [Concomitant]
     Route: 048
     Dates: start: 20061205
  5. ADALAT L [Concomitant]
     Dosage: UNK
     Route: 048
     Dates: end: 20061024

REACTIONS (3)
  - Hepatitis B [Recovering/Resolving]
  - Disease progression [Fatal]
  - Insomnia [Recovered/Resolved]
